FAERS Safety Report 5007429-1 (Version None)
Quarter: 2006Q2

REPORT INFORMATION
  Report Type: 
  Country: None (occurrence: None)
  Receive Date: 20060519
  Receipt Date: 20060519
  Transmission Date: 20061013
  Serious: Yes (Other)
  Sender: FDA-Public Use
  Company Number: None

PATIENT
  Age: 25 Year
  Sex: Female
  Weight: 74.8435 kg

DRUGS (1)
  1. DEPO-PROVERA [Suspect]
     Indication: CONTRACEPTION
     Dosage: INJECTION 4X A YEAR IM
     Route: 030
     Dates: start: 20020901, end: 20041101

REACTIONS (7)
  - ALOPECIA [None]
  - AMENORRHOEA [None]
  - FATIGUE [None]
  - HORMONE LEVEL ABNORMAL [None]
  - MENOPAUSE [None]
  - PAIN [None]
  - WEIGHT INCREASED [None]
